FAERS Safety Report 12047582 (Version 2)
Quarter: 2018Q2

REPORT INFORMATION
  Report Type: Spontaneous
  Country: US (occurrence: US)
  Receive Date: 20160209
  Receipt Date: 20180423
  Transmission Date: 20180711
  Serious: Yes (Hospitalization, Disabling, Other)
  Sender: FDA-Public Use
  Company Number: US-GLENMARK PHARMACEUTICALS INC, USA.-2016GMK021981

PATIENT
  Age: 16 Year
  Sex: Male

DRUGS (2)
  1. LAMOTRIGINE. [Suspect]
     Active Substance: LAMOTRIGINE
     Indication: SEIZURE
     Dosage: UNK
     Route: 065
  2. LAMOTRIGINE. [Suspect]
     Active Substance: LAMOTRIGINE
     Dosage: UNK (DOSE INCREASED)
     Route: 065

REACTIONS (3)
  - Tubulointerstitial nephritis and uveitis syndrome [Recovered/Resolved]
  - Cogan^s syndrome [Recovered/Resolved with Sequelae]
  - Chorioretinopathy [Recovered/Resolved]
